FAERS Safety Report 20221200 (Version 2)
Quarter: 2022Q1

REPORT INFORMATION
  Report Type: Spontaneous
  Country: FR (occurrence: FR)
  Receive Date: 20211223
  Receipt Date: 20220303
  Transmission Date: 20220424
  Serious: Yes (Other)
  Sender: FDA-Public Use
  Company Number: None

PATIENT
  Age: 39 Year
  Sex: Female
  Weight: 116 kg

DRUGS (9)
  1. PREDNISONE [Suspect]
     Active Substance: PREDNISONE
     Indication: Thrombocytopenia
     Dosage: 80 MG, DAILY (IN THE MORNING)
     Route: 048
     Dates: start: 202104, end: 20211123
  2. PREDNISONE [Suspect]
     Active Substance: PREDNISONE
     Dosage: 10 MG, QD
     Route: 048
     Dates: start: 202104, end: 20211123
  3. KARDEGIC [Suspect]
     Active Substance: ASPIRIN DL-LYSINE
     Indication: Haemorrhage prophylaxis
     Dosage: 1 DF, DAILY
     Route: 048
     Dates: start: 202105
  4. FERROUS SULFATE [Suspect]
     Active Substance: FERROUS SULFATE
     Indication: Iron deficiency
     Dosage: 1 DOSAGE FORM, QD
     Route: 048
     Dates: start: 20210707
  5. TRANDATE [Suspect]
     Active Substance: LABETALOL HYDROCHLORIDE
     Indication: Hypertension
     Dosage: 1 DOSAGE FORM, QD, (1 DF, QD)
     Route: 048
     Dates: start: 20210409
  6. POTASSIUM CHLORIDE [Suspect]
     Active Substance: POTASSIUM CHLORIDE
     Indication: Hypokalaemia
     Dosage: 1 DOSAGE FORM, QD, (1 DF, DAILY)
     Route: 048
     Dates: start: 20211115
  7. PLAQUENIL [Suspect]
     Active Substance: HYDROXYCHLOROQUINE SULFATE
     Indication: Systemic lupus erythematosus
     Dosage: 1 DOSAGE FORM, Q8H
     Route: 048
     Dates: start: 20210409
  8. PLAQUENIL [Suspect]
     Active Substance: HYDROXYCHLOROQUINE SULFATE
     Dosage: 600 MG, QD, 200 MG, TID (3/DAY), ONE EVERY 8 HOURS
     Route: 048
     Dates: start: 20210409
  9. FERROUS SULFATE\FOLIC ACID\GASTRIC MUCIN [Suspect]
     Active Substance: FERROUS SULFATE\FOLIC ACID\GASTRIC MUCIN
     Indication: Iron deficiency
     Dosage: 1 DF, DAILY
     Route: 048
     Dates: start: 202104

REACTIONS (2)
  - Foetal death [Not Recovered/Not Resolved]
  - Maternal exposure during pregnancy [Unknown]

NARRATIVE: CASE EVENT DATE: 20211123
